FAERS Safety Report 23175078 (Version 1)
Quarter: 2023Q4

REPORT INFORMATION
  Report Type: Spontaneous
  Country: US (occurrence: US)
  Receive Date: 20231112
  Receipt Date: 20231112
  Transmission Date: 20240110
  Serious: No
  Sender: FDA-Public Use
  Company Number: US-Blueprint Medicines Corporation-SP-US-2023-001762

PATIENT
  Age: 90 Year

DRUGS (2)
  1. AYVAKIT [Suspect]
     Active Substance: AVAPRITINIB
     Indication: Systemic mastocytosis
     Route: 048
  2. LUSPATERCEPT [Concomitant]
     Active Substance: LUSPATERCEPT
     Indication: Systemic mastocytosis
     Route: 065

REACTIONS (1)
  - Off label use [Unknown]
